FAERS Safety Report 8429822-7 (Version None)
Quarter: 2012Q2

REPORT INFORMATION
  Report Type: 
  Country: None (occurrence: None)
  Receive Date: 20120612
  Receipt Date: 20120530
  Transmission Date: 20120825
  Serious: No
  Sender: FDA-Public Use
  Company Number: US-ASTRAZENECA-2012SE35378

PATIENT

DRUGS (2)
  1. VITAMIN TAB [Concomitant]
  2. CRESTOR [Suspect]
     Route: 048

REACTIONS (1)
  - TONGUE PRURITUS [None]
